FAERS Safety Report 8357127-1 (Version None)
Quarter: 2012Q2

REPORT INFORMATION
  Report Type: 
  Country: None (occurrence: None)
  Receive Date: 20120514
  Receipt Date: 20120504
  Transmission Date: 20120825
  Serious: Yes (Other)
  Sender: FDA-Public Use
  Company Number: GB-BRISTOL-MYERS SQUIBB COMPANY-16577264

PATIENT
  Sex: Male

DRUGS (2)
  1. ABILIFY [Suspect]
  2. ZUCLOPENTHIXOL [Suspect]

REACTIONS (1)
  - CARDIAC DISORDER [None]
